FAERS Safety Report 6986701-X (Version None)
Quarter: 2010Q3

REPORT INFORMATION
  Report Type: 
  Country: None (occurrence: None)
  Receive Date: 20100915
  Receipt Date: 20090728
  Transmission Date: 20110219
  Serious: No
  Sender: FDA-Public Use
  Company Number: US-WYE-H10348209

PATIENT
  Sex: Female
  Weight: 105.78 kg

DRUGS (9)
  1. PRISTIQ [Suspect]
     Indication: DEPRESSION
     Route: 048
     Dates: start: 20090707
  2. DILTIAZEM [Concomitant]
  3. HUMALOG [Concomitant]
  4. SEROQUEL [Concomitant]
  5. LAMICTAL [Concomitant]
  6. PREVACID [Concomitant]
  7. KLONOPIN [Concomitant]
  8. WELLBUTRIN [Concomitant]
  9. SYNTHROID [Concomitant]

REACTIONS (1)
  - URINE COLOUR ABNORMAL [None]
